FAERS Safety Report 9849031 (Version 1)
Quarter: 2013Q4

REPORT INFORMATION
  Report Type: Spontaneous
  Country: US (occurrence: None)
  Receive Date: 20131226
  Receipt Date: 20131226
  Transmission Date: 20140711
  Serious: Yes (Other)
  Sender: FDA-Public Use
  Company Number: PHEH2013US005510

PATIENT
  Age: 55 Year
  Sex: Male

DRUGS (1)
  1. EXTAVIA [Suspect]
     Indication: MULTIPLE SCLEROSIS
     Dosage: 0.125 UG, QOD (0.50 ML OF TITRATION DOSE QOD), SUBCUTANEOUS

REACTIONS (2)
  - Multiple sclerosis relapse [None]
  - Visual impairment [None]
